FAERS Safety Report 15299051 (Version 1)
Quarter: 2018Q3

REPORT INFORMATION
  Report Type: Report from Study
  Country: IL (occurrence: IL)
  Receive Date: 20180821
  Receipt Date: 20180821
  Transmission Date: 20181010
  Serious: Yes (Hospitalization, Other)
  Sender: FDA-Public Use
  Company Number: IL-ROCHE-2166710

PATIENT
  Age: 63 Year
  Sex: Male
  Weight: 103 kg

DRUGS (6)
  1. FOLIC ACID. [Concomitant]
     Active Substance: FOLIC ACID
     Dosage: ADVERSE EVENT OF SPECIAL INTEREST
     Route: 048
     Dates: start: 20180718
  2. PREDNISONE. [Concomitant]
     Active Substance: PREDNISONE
     Dosage: ADVERSE EVENT OF SPECIAL INTEREST
     Route: 048
     Dates: start: 20180728
  3. ATEZOLIZUMAB. [Suspect]
     Active Substance: ATEZOLIZUMAB
     Indication: RENAL CELL CARCINOMA
     Dosage: MOST RECENT DOSE OF BLINDED ATEZOLIZUMAB: 12/JUN/2018 AT 16:00
     Route: 042
     Dates: start: 20170710
  4. EUTIROX [Concomitant]
     Active Substance: LEVOTHYROXINE SODIUM
     Dosage: NOT FOR RENAL CELL CARCINOMA
     Route: 048
     Dates: start: 20171124
  5. LEVOFLOXACIN. [Concomitant]
     Active Substance: LEVOFLOXACIN
     Dosage: ADVERSE EVENT OF SPECIAL INTEREST
     Route: 048
     Dates: start: 20180722, end: 20180727
  6. PREDNISONE. [Concomitant]
     Active Substance: PREDNISONE
     Dosage: ADVERSE EVENT OF SPECIAL INTEREST
     Route: 048
     Dates: start: 20180722, end: 20180728

REACTIONS (2)
  - Autoimmune disorder [Not Recovered/Not Resolved]
  - Anaemia [Not Recovered/Not Resolved]

NARRATIVE: CASE EVENT DATE: 20180718
